FAERS Safety Report 12059331 (Version 1)
Quarter: 2016Q1

REPORT INFORMATION
  Report Type: Spontaneous
  Country: US (occurrence: None)
  Receive Date: 20160209
  Receipt Date: 20160209
  Transmission Date: 20160526
  Serious: Yes (Other)
  Sender: FDA-Public Use
  Company Number: None

PATIENT
  Age: 53 Year
  Sex: Female
  Weight: 107.96 kg

DRUGS (8)
  1. LISINOPRIL. [Concomitant]
     Active Substance: LISINOPRIL
  2. CPAP [Concomitant]
     Active Substance: DEVICE
  3. LAMOTRIGINE. [Concomitant]
     Active Substance: LAMOTRIGINE
  4. QUETIAPINE FUMARATE 50 MG TEVA USA [Suspect]
     Active Substance: QUETIAPINE FUMARATE
     Indication: INSOMNIA
     Dosage: 1/4 TO 1 TABLET ONCE DAILY TAKEN BY MOUTH
     Route: 048
     Dates: start: 20151115, end: 20160207
  5. PRAMIPEXOLE. [Concomitant]
     Active Substance: PRAMIPEXOLE
  6. HEMAPLEX ELEMENTAL IRON SUPPLEMENT [Concomitant]
  7. OMEPERAZOLE [Concomitant]
  8. SERTRALINE [Concomitant]
     Active Substance: SERTRALINE HYDROCHLORIDE

REACTIONS (7)
  - Pain in extremity [None]
  - Myalgia [None]
  - Back pain [None]
  - Middle insomnia [None]
  - Wrong technique in product usage process [None]
  - Muscle disorder [None]
  - Arthralgia [None]

NARRATIVE: CASE EVENT DATE: 20160207
